FAERS Safety Report 7117171 (Version 7)
Quarter: 2014Q1

REPORT INFORMATION
  Report Type: Other
  Country: CA (occurrence: US)
  Receive Date: 20090917
  Receipt Date: 20140325
  Transmission Date: 20141002
  Serious: Yes (Other)
  Sender: FDA-Public Use
  Company Number: CA-BRISTOL-MYERS SQUIBB COMPANY-14780902

PATIENT
  Age: 52 Year
  Sex: Male

DRUGS (19)
  1. STAVUDINE [Suspect]
     Indication: HIV INFECTION
     Route: 065
  2. DIDANOSINE [Suspect]
     Indication: HIV INFECTION
     Route: 065
  3. SUSTIVA CAPS [Suspect]
     Indication: HIV INFECTION
     Route: 048
  4. ZIDOVUDINE [Suspect]
     Indication: HIV INFECTION
     Route: 065
  5. LAMIVUDINE [Suspect]
     Indication: HIV INFECTION
     Route: 065
  6. INDINAVIR SULFATE [Suspect]
     Indication: HIV INFECTION
     Dosage: FORM: CAPSULES.
     Route: 048
  7. NORVIR [Suspect]
     Indication: HIV INFECTION
     Route: 065
  8. SAQUINAVIR [Suspect]
     Indication: HIV INFECTION
     Route: 048
  9. ABACAVIR SULFATE [Suspect]
     Indication: HIV INFECTION
     Route: 065
  10. LOPINAVIR [Suspect]
     Indication: HIV INFECTION
     Route: 065
  11. NEVIRAPINE [Suspect]
     Indication: HIV INFECTION
     Route: 065
  12. ENFUVIRTIDE [Suspect]
     Indication: HIV INFECTION
     Route: 058
  13. TENOFOVIR DISOPROXIL FUMARATE [Suspect]
     Indication: HIV INFECTION
     Route: 065
  14. DARUNAVIR [Suspect]
     Indication: HIV INFECTION
     Route: 065
  15. DELAVIRDINE [Suspect]
     Indication: HIV INFECTION
     Route: 065
  16. RALTEGRAVIR [Suspect]
     Indication: HIV INFECTION
     Dosage: RALTEGRAVIR 400 MG TABS
     Route: 048
  17. ETRAVIRINE [Suspect]
     Indication: HIV INFECTION
     Route: 065
  18. VIRACEPT [Suspect]
     Indication: HIV INFECTION
     Route: 065
  19. LOPINAVIR + RITONAVIR [Suspect]
     Indication: HIV INFECTION
     Route: 065

REACTIONS (5)
  - Progressive external ophthalmoplegia [Unknown]
  - Lipodystrophy acquired [Unknown]
  - Mitochondrial toxicity [Unknown]
  - Diplopia [Unknown]
  - Eyelid ptosis [Unknown]
